FAERS Safety Report 8743680 (Version 2)
Quarter: 2012Q4

REPORT INFORMATION
  Report Type: 
  Country: JP (occurrence: JP)
  Receive Date: 20120824
  Receipt Date: 20121214
  Transmission Date: 20130627
  Serious: Yes (Other)
  Sender: FDA-Public Use
  Company Number: JP-009507513-1207JPN000643

PATIENT
  Age: 51 Year
  Sex: Male
  Weight: 68 kg

DRUGS (16)
  1. PEGINTRON [Suspect]
     Indication: CHRONIC HEPATITIS C
     Dosage: 1.5 Microgram per kilogram, qw
     Route: 058
     Dates: start: 20120428
  2. PEGINTRON [Suspect]
     Dosage: 1.2 Microgram per kilogram, qw
     Route: 058
     Dates: end: 20121005
  3. PEGINTRON [Suspect]
     Dosage: UNK
  4. REBETOL [Suspect]
     Indication: CHRONIC HEPATITIS C
     Dosage: 800 mg, qd
     Route: 048
     Dates: start: 20120428, end: 20120510
  5. REBETOL [Suspect]
     Dosage: 400 mg, qd
     Route: 048
     Dates: start: 20120511, end: 20120531
  6. REBETOL [Suspect]
     Dosage: 200 mg, qd
     Route: 048
     Dates: start: 20120601, end: 20120816
  7. REBETOL [Suspect]
     Dosage: 400 mg, qd
     Route: 048
     Dates: start: 20120817, end: 20120913
  8. REBETOL [Suspect]
     Dosage: 600 mg, qd
     Route: 048
     Dates: start: 20120914, end: 20121005
  9. TELAVIC [Suspect]
     Indication: CHRONIC HEPATITIS C
     Dosage: 2250 mg, qd
     Route: 048
     Dates: start: 20120428, end: 20120503
  10. TELAVIC [Suspect]
     Dosage: 1500 mg, qd
     Route: 048
     Dates: start: 20120504, end: 20120531
  11. TELAVIC [Suspect]
     Dosage: 1000 mg, qd
     Route: 048
     Dates: start: 20120601, end: 20120621
  12. TELAVIC [Suspect]
     Dosage: 1500 mg, qd
     Route: 048
     Dates: start: 20120622, end: 20120720
  13. CLARITIN REDITABS [Concomitant]
     Indication: PROPHYLAXIS
     Dosage: 10 mg, qd, Formulation: POR
     Route: 048
  14. LIVALO [Concomitant]
     Indication: HYPERLIPIDAEMIA
     Dosage: 1 mg, qd, Formulation: POR
     Route: 048
  15. EPADEL S [Concomitant]
     Indication: HYPERLIPIDAEMIA
     Dosage: 1800 mg, qd, Formulation: POR
     Route: 048
  16. FEROTYM [Concomitant]
     Indication: IRON DEFICIENCY ANAEMIA
     Dosage: 100 mg, qd, Formulation: POR
     Route: 048

REACTIONS (3)
  - Renal disorder [Recovered/Resolved]
  - Anaemia [Not Recovered/Not Resolved]
  - Platelet count decreased [None]
